FAERS Safety Report 6805920-6 (Version None)
Quarter: 2010Q2

REPORT INFORMATION
  Report Type: 
  Country: None (occurrence: None)
  Receive Date: 20100629
  Receipt Date: 20071026
  Transmission Date: 20101027
  Serious: No
  Sender: FDA-Public Use
  Company Number: US-PFIZER INC-2007091291

PATIENT
  Sex: Male
  Weight: 77.1 kg

DRUGS (6)
  1. VIAGRA [Suspect]
     Indication: ERECTILE DYSFUNCTION
     Dates: start: 20030101
  2. VITAMIN E [Concomitant]
  3. ACETYLSALICYLIC ACID [Concomitant]
  4. CALCIUM CARBONATE [Concomitant]
  5. MULTI-VITAMINS [Concomitant]
  6. GARLIC [Concomitant]

REACTIONS (5)
  - BACK PAIN [None]
  - DYSURIA [None]
  - MICTURITION URGENCY [None]
  - RESIDUAL URINE [None]
  - URETHRAL PAIN [None]
